FAERS Safety Report 16879247 (Version 4)
Quarter: 2020Q4

REPORT INFORMATION
  Report Type: Report from Study
  Country: None (occurrence: JP)
  Receive Date: 20191003
  Receipt Date: 20201207
  Transmission Date: 20210113
  Serious: Yes (Hospitalization)
  Sender: FDA-Public Use
  Company Number: JP-ABBVIE-19K-087-2925623-00

PATIENT
  Age: 75 Year
  Sex: Female

DRUGS (3)
  1. DUODOPA [Suspect]
     Active Substance: CARBIDOPA\LEVODOPA
  2. LEVODOPA AND BENSERAZIDE HYDROCHLORIDE [Concomitant]
     Active Substance: BENSERAZIDE HYDROCHLORIDE\LEVODOPA
     Indication: PRODUCT USED FOR UNKNOWN INDICATION
  3. DUODOPA [Suspect]
     Active Substance: CARBIDOPA\LEVODOPA
     Indication: PARKINSON^S DISEASE
     Route: 050
     Dates: start: 20190726

REACTIONS (6)
  - Compression fracture [Not Recovered/Not Resolved]
  - Muscular weakness [Unknown]
  - Device colour issue [Unknown]
  - Tooth disorder [Unknown]
  - Musculoskeletal stiffness [Unknown]
  - Complication associated with device [Unknown]

NARRATIVE: CASE EVENT DATE: 2019
